FAERS Safety Report 18657247 (Version 7)
Quarter: 2021Q2

REPORT INFORMATION
  Report Type: Report from Study
  Country: AR (occurrence: AR)
  Receive Date: 20201223
  Receipt Date: 20210626
  Transmission Date: 20210717
  Serious: Yes (Other)
  Sender: FDA-Public Use
  Company Number: NVSC2020AR275118

PATIENT
  Sex: Female

DRUGS (1)
  1. COSENTYX [Suspect]
     Active Substance: SECUKINUMAB
     Indication: PSORIATIC ARTHROPATHY
     Dosage: 300 MG, QMO
     Route: 058
     Dates: start: 20200901, end: 20210201

REACTIONS (14)
  - Pneumonia [Unknown]
  - Dyspnoea [Unknown]
  - Malaise [Unknown]
  - Emphysema [Unknown]
  - Hypokinesia [Unknown]
  - Calcium deficiency [Unknown]
  - Cerebrovascular accident [Unknown]
  - Dysphonia [Not Recovered/Not Resolved]
  - Neoplasm malignant [Unknown]
  - Aortic elongation [Unknown]
  - Hernia [Unknown]
  - Speech disorder [Unknown]
  - Bone pain [Unknown]
  - Intervertebral disc protrusion [Unknown]
